FAERS Safety Report 6861119-9 (Version None)
Quarter: 2010Q3

REPORT INFORMATION
  Report Type: 
  Country: None (occurrence: None)
  Receive Date: 20100715
  Receipt Date: 20100701
  Transmission Date: 20110219
  Serious: Yes (Death, Congenital Anomaly, Other)
  Sender: FDA-Public Use
  Company Number: AUR-APL-2010-01692

PATIENT

DRUGS (2)
  1. SERTRALINE HYDROCHLORIDE [Suspect]
     Indication: DEPRESSION
     Dosage: 100MG, TRANSPLACENT
     Route: 064
  2. ESCITALOPRAM [Suspect]
     Indication: DEPRESSION
     Dosage: 20MG, TRANSPLACENT
     Route: 064

REACTIONS (2)
  - INTRA-UTERINE DEATH [None]
  - MATERNAL DRUGS AFFECTING FOETUS [None]
